FAERS Safety Report 10146851 (Version 1)
Quarter: 2014Q2

REPORT INFORMATION
  Report Type: Spontaneous
  Country: US (occurrence: US)
  Receive Date: 20140501
  Receipt Date: 20140501
  Transmission Date: 20141212
  Serious: No
  Sender: FDA-Public Use
  Company Number: US-BAUSCH-BL-2014-000648

PATIENT
  Age: 89 Year
  Sex: Female

DRUGS (2)
  1. ALREX (LOTEPREDNOL ETABONATE OPHTHALMIC SUSPENSION 0.2%) [Suspect]
     Indication: EYE INFLAMMATION
     Dosage: 1 DROP IN BOTH EYES 2 TO 3 TIMES DAILY
     Route: 047
     Dates: start: 20140114, end: 20140121
  2. LATANOPROST [Concomitant]
     Indication: GLAUCOMA

REACTIONS (2)
  - Diplopia [Not Recovered/Not Resolved]
  - Eye swelling [Not Recovered/Not Resolved]
